FAERS Safety Report 7745217-3 (Version None)
Quarter: 2011Q3

REPORT INFORMATION
  Report Type: 
  Country: None (occurrence: None)
  Receive Date: 20110907
  Receipt Date: 20110824
  Transmission Date: 20111222
  Serious: Yes (Hospitalization, Other)
  Sender: FDA-Public Use
  Company Number: JPI-P-012240

PATIENT
  Age: 83 Year
  Sex: Female

DRUGS (2)
  1. XYREM [Suspect]
     Indication: CATAPLEXY
     Dosage: 4.5 GM (2.25 GM, 2 IN 1 D), ORAL 6 GM (3 GM, 2 IN 1 D), ORAL 6 GM (3 GM, 2 IN 1 D), ORAL
     Route: 048
     Dates: end: 20101201
  2. XYREM [Suspect]
     Indication: CATAPLEXY
     Dosage: 4.5 GM (2.25 GM, 2 IN 1 D), ORAL 6 GM (3 GM, 2 IN 1 D), ORAL 6 GM (3 GM, 2 IN 1 D), ORAL
     Route: 048
     Dates: start: 20030623

REACTIONS (12)
  - VISION BLURRED [None]
  - MYOCARDIAL INFARCTION [None]
  - MACULAR DEGENERATION [None]
  - FALL [None]
  - LEUKAEMIA [None]
  - TREMOR [None]
  - WEIGHT DECREASED [None]
  - BREAST CANCER [None]
  - IRRITABLE BOWEL SYNDROME [None]
  - DEPRESSION [None]
  - CEREBROVASCULAR ACCIDENT [None]
  - VOMITING [None]
